FAERS Safety Report 4670194-1 (Version None)
Quarter: 2005Q2

REPORT INFORMATION
  Report Type: 
  Country: None (occurrence: None)
  Receive Date: 20050520
  Receipt Date: 20050512
  Transmission Date: 20051028
  Serious: Yes (Hospitalization, Other)
  Sender: FDA-Public Use
  Company Number: 2005074382

PATIENT
  Sex: Female
  Weight: 90.7194 kg

DRUGS (8)
  1. NORVASC [Suspect]
     Indication: BLOOD PRESSURE
     Dosage: 5 MG (5 MG, DAILY INTERVAL: EVERY DAY) ORAL
     Route: 048
  2. HYZAAR [Suspect]
     Indication: BLOOD PRESSURE
     Dosage: (DAILY INTERVAL: EVERY DAY) ORAL
     Route: 048
  3. NEXIUM [Concomitant]
  4. VYTORIN (EXETIMIBE, SIMVASTATIN) [Concomitant]
  5. PREDNISONE TAB [Concomitant]
  6. COLCHICINE [Concomitant]
  7. ZYLOPRIM [Concomitant]
  8. CELEXA [Concomitant]

REACTIONS (10)
  - ABDOMINAL PAIN UPPER [None]
  - BALANCE DISORDER [None]
  - BLOOD POTASSIUM DECREASED [None]
  - DRY MOUTH [None]
  - GLAUCOMA [None]
  - IMPAIRED HEALING [None]
  - NERVOUSNESS [None]
  - STOMACH DISCOMFORT [None]
  - TENSION [None]
  - TREMOR [None]
